FAERS Safety Report 8804920 (Version 2)
Quarter: 2012Q4

REPORT INFORMATION
  Report Type: 
  Country: US (occurrence: US)
  Receive Date: 20120924
  Receipt Date: 20120927
  Transmission Date: 20130627
  Serious: Yes (Other)
  Sender: FDA-Public Use
  Company Number: US-PFIZER INC-2012232480

PATIENT
  Age: 65 Year
  Sex: Female
  Weight: 74.83 kg

DRUGS (9)
  1. LIPITOR [Suspect]
     Indication: CARDIAC VALVE DISEASE
     Dosage: 10 mg, 1x/day
     Route: 048
     Dates: start: 2004
  2. LIPITOR [Suspect]
     Dosage: 10 mg, 1x/day
     Route: 048
  3. LISINOPRIL/ HYDROCHLOROTHIAZIDE [Concomitant]
     Dosage: 20 mg/25 mg (0.5 tablets daily)
  4. METOPROLOL SUCCINATE [Concomitant]
     Dosage: 50 mg XL, 2x/day
     Route: 048
  5. ALPRAZOLAM [Concomitant]
     Indication: ANXIETY
     Dosage: 0.25 mg, one tablet 3x/day as needed
     Route: 048
  6. WARFARIN [Concomitant]
     Dosage: 3 mg, 1x/day, after lunch
     Route: 048
  7. ACETAMINOPHEN [Concomitant]
     Dosage: 650 mg, every 4 hrs, as needed (temp}101)
     Route: 048
  8. ASPIRIN [Concomitant]
     Dosage: 81 mg, 1x/day
     Route: 048
  9. PROVENTIL HFA [Concomitant]
     Indication: WHEEZING
     Dosage: 90 mcg/actuation inhaler, 2 puffs by inhalation route every 4 hours as needed
     Route: 055

REACTIONS (4)
  - Aortic stenosis [Unknown]
  - Atrial fibrillation [Unknown]
  - Hypertension [Unknown]
  - Cardiac valve disease [Unknown]
